FAERS Safety Report 8096945-4 (Version None)
Quarter: 2012Q1

REPORT INFORMATION
  Report Type: 
  Country: None (occurrence: None)
  Receive Date: 20120129
  Receipt Date: 20111220
  Transmission Date: 20120608
  Serious: Yes (Hospitalization, Other)
  Sender: FDA-Public Use
  Company Number: US-ABBOTT-11P-163-0734715-00

PATIENT
  Sex: Male

DRUGS (11)
  1. TRILIPIX [Concomitant]
     Indication: BLOOD CHOLESTEROL INCREASED
     Route: 048
  2. METRAZOL [Concomitant]
     Indication: CROHN'S DISEASE
     Dosage: 3 TIMES DAILY 1/2 HOUR BEFORE MEALS
  3. HYOMAX [Concomitant]
     Indication: CROHN'S DISEASE
     Dosage: 3 TIMES DAILY, 1/2 HOUR BEFORE MEALS
  4. VITAMIN D [Concomitant]
     Indication: VITAMIN SUPPLEMENTATION
     Route: 048
  5. HUMIRA [Suspect]
     Indication: CROHN'S DISEASE
     Route: 058
     Dates: start: 20110325
  6. NEXIUM [Concomitant]
     Indication: GASTROOESOPHAGEAL REFLUX DISEASE
     Route: 048
  7. CIPROFLOXACIN [Suspect]
     Indication: DIVERTICULITIS
     Dates: start: 20110620, end: 20110627
  8. CIPROFLOXACIN [Suspect]
     Route: 042
     Dates: start: 20110601
  9. ENTOCORT EC [Concomitant]
     Indication: CROHN'S DISEASE
     Dosage: 3 - 3MG TABLETS TWICE A DAY
     Route: 048
  10. MULTI-VITAMIN [Concomitant]
     Indication: VITAMIN SUPPLEMENTATION
     Route: 048
  11. ASPIRIN [Concomitant]
     Indication: PRODUCT USED FOR UNKNOWN INDICATION
     Route: 048

REACTIONS (7)
  - PYREXIA [None]
  - DIVERTICULITIS [None]
  - PSORIASIS [None]
  - ABDOMINAL PAIN [None]
  - POSTOPERATIVE WOUND INFECTION [None]
  - FEELING ABNORMAL [None]
  - CROHN'S DISEASE [None]
